FAERS Safety Report 21176357 (Version 2)
Quarter: 2022Q3

REPORT INFORMATION
  Report Type: Spontaneous
  Country: IT (occurrence: IT)
  Receive Date: 20220805
  Receipt Date: 20220816
  Transmission Date: 20221027
  Serious: Yes (Death, Other)
  Sender: FDA-Public Use
  Company Number: IT-AMGEN-ITASP2022133295

PATIENT

DRUGS (10)
  1. PANITUMUMAB [Suspect]
     Active Substance: PANITUMUMAB
     Indication: Colorectal adenocarcinoma
     Dosage: 6 MG/KG OVER I H DAY 1
     Route: 065
  2. FLUOROURACIL [Concomitant]
     Active Substance: FLUOROURACIL
     Indication: Colorectal adenocarcinoma
     Dosage: 2400 MG/MQ OVER 48 H
     Route: 065
  3. FLUOROURACIL [Concomitant]
     Active Substance: FLUOROURACIL
     Dosage: 400 MG/MQ 3-4 DAY 1
     Route: 065
  4. FLUOROURACIL [Concomitant]
     Active Substance: FLUOROURACIL
     Dosage: 2,400 MG/MQ 48 H DAY 1
     Route: 065
  5. LEUCOVORIN [Concomitant]
     Active Substance: LEUCOVORIN
     Indication: Colorectal adenocarcinoma
     Dosage: 200 MG/MQ OVER 2 H DAY 1
     Route: 065
  6. LEUCOVORIN [Concomitant]
     Active Substance: LEUCOVORIN
     Dosage: 200 MG/MQ OVER 2 H DAY 1-2, 5
     Route: 065
  7. IRINOTECAN [Concomitant]
     Active Substance: IRINOTECAN
     Indication: Colorectal adenocarcinoma
     Dosage: 150 MG/MQ OVER 1 H DAY 1
     Route: 065
  8. IRINOTECAN [Concomitant]
     Active Substance: IRINOTECAN
     Dosage: 180 MG/MQ OVER 90 MIN DAY 1
     Route: 065
  9. OXALIPLATIN [Concomitant]
     Active Substance: OXALIPLATIN
     Indication: Colorectal adenocarcinoma
     Dosage: 85 MG/MQ OVER 2 H DAY 1
     Route: 065
  10. AFLIBERCEPT [Concomitant]
     Active Substance: AFLIBERCEPT
     Indication: Colorectal adenocarcinoma
     Dosage: UNK, Q2WK (4 MG/KG OVER 1 H, EVERY 2 WEEKS)
     Route: 065

REACTIONS (5)
  - Death [Fatal]
  - General physical health deterioration [Fatal]
  - Metastases to liver [Unknown]
  - Colorectal adenocarcinoma [Unknown]
  - BRAF V600E mutation positive [Unknown]
